FAERS Safety Report 11125425 (Version 3)
Quarter: 2015Q2

REPORT INFORMATION
  Report Type: Report from Study
  Country: CA (occurrence: CA)
  Receive Date: 20150520
  Receipt Date: 20150616
  Transmission Date: 20150821
  Serious: Yes (Other)
  Sender: FDA-Public Use
  Company Number: CA-ABBVIE-14K-028-1283573-00

PATIENT
  Age: 30 Year
  Sex: Female

DRUGS (4)
  1. PREDNISONE. [Concomitant]
     Active Substance: PREDNISONE
     Indication: CROHN^S DISEASE
     Route: 048
     Dates: start: 20150424
  2. PREDNISONE. [Concomitant]
     Active Substance: PREDNISONE
     Route: 048
     Dates: start: 2015, end: 20150522
  3. HUMIRA [Suspect]
     Active Substance: ADALIMUMAB
     Indication: CROHN^S DISEASE
     Route: 058
     Dates: start: 20121115
  4. PREDNISONE. [Concomitant]
     Active Substance: PREDNISONE
     Indication: MALAISE
     Route: 048
     Dates: start: 2014

REACTIONS (21)
  - Anorectal discomfort [Recovering/Resolving]
  - Flatulence [Unknown]
  - Diarrhoea haemorrhagic [Recovered/Resolved]
  - Nodule [Not Recovered/Not Resolved]
  - Rectal fissure [Not Recovered/Not Resolved]
  - Stress [Not Recovered/Not Resolved]
  - Abdominal discomfort [Not Recovered/Not Resolved]
  - Rectal lesion [Recovered/Resolved]
  - Feeling abnormal [Not Recovered/Not Resolved]
  - Proctalgia [Not Recovered/Not Resolved]
  - Muscle spasms [Unknown]
  - Pain [Not Recovered/Not Resolved]
  - Malaise [Unknown]
  - Anorectal discomfort [Not Recovered/Not Resolved]
  - Diarrhoea [Unknown]
  - Drug ineffective [Not Recovered/Not Resolved]
  - Malaise [Not Recovered/Not Resolved]
  - Frequent bowel movements [Not Recovered/Not Resolved]
  - Rectal abscess [Unknown]
  - Abdominal pain [Not Recovered/Not Resolved]
  - Flatulence [Recovered/Resolved]

NARRATIVE: CASE EVENT DATE: 2014
